FAERS Safety Report 5836939-X (Version None)
Quarter: 2008Q3

REPORT INFORMATION
  Report Type: 
  Country: None (occurrence: None)
  Receive Date: 20080805
  Receipt Date: 20080723
  Transmission Date: 20090109
  Serious: No
  Sender: FDA-Public Use
  Company Number: LIT-08-0003

PATIENT

DRUGS (1)
  1. LIDOCAINE HCL [Suspect]

REACTIONS (6)
  - AIRWAY COMPLICATION OF ANAESTHESIA [None]
  - ANAESTHETIC COMPLICATION [None]
  - CHILLS [None]
  - EPISTAXIS [None]
  - INFECTION [None]
  - LOWER RESPIRATORY TRACT INFECTION [None]
